FAERS Safety Report 5626201-2 (Version None)
Quarter: 2008Q1

REPORT INFORMATION
  Report Type: 
  Country: None (occurrence: None)
  Receive Date: 20080214
  Receipt Date: 20080212
  Transmission Date: 20080703
  Serious: Yes (Other)
  Sender: FDA-Public Use
  Company Number: A0707216A

PATIENT
  Age: 84 Year
  Sex: Female
  Weight: 64 kg

DRUGS (4)
  1. ROSIGLITAZONE [Suspect]
     Dosage: 8MG PER DAY
     Route: 048
     Dates: start: 20080108
  2. DONEPEZIL HCL [Concomitant]
     Route: 048
     Dates: start: 20060407
  3. COVERSYL [Concomitant]
     Dosage: 2MG PER DAY
     Route: 048
     Dates: start: 20050101
  4. NORVASC [Concomitant]
     Dosage: 5MG PER DAY
     Route: 048
     Dates: start: 20050101

REACTIONS (2)
  - ATRIAL FIBRILLATION [None]
  - CARDIOMYOPATHY [None]
